FAERS Safety Report 12615754 (Version 2)
Quarter: 2016Q3

REPORT INFORMATION
  Report Type: Spontaneous
  Country: ES (occurrence: ES)
  Receive Date: 20160802
  Receipt Date: 20160818
  Transmission Date: 20161109
  Serious: Yes (Other)
  Sender: FDA-Public Use
  Company Number: ES-SA-2016SA136910

PATIENT
  Age: 17 Year
  Sex: Male

DRUGS (4)
  1. TOUJEO [Suspect]
     Active Substance: INSULIN GLARGINE
     Indication: TYPE 1 DIABETES MELLITUS
     Route: 065
     Dates: start: 201606
  2. VEREGEN [Concomitant]
     Active Substance: SINECATECHINS
  3. SOLOSTAR [Concomitant]
     Active Substance: DEVICE
     Indication: TYPE 1 DIABETES MELLITUS
     Dates: start: 201606
  4. PLANTAGO OVATA [Concomitant]
     Active Substance: PLANTAGO OVATA LEAF

REACTIONS (2)
  - Blood bilirubin increased [Recovering/Resolving]
  - Hepatitis toxic [Recovering/Resolving]
